FAERS Safety Report 7980988-2 (Version None)
Quarter: 2011Q4

REPORT INFORMATION
  Report Type: 
  Country: None (occurrence: None)
  Receive Date: 20111215
  Receipt Date: 20111209
  Transmission Date: 20120403
  Serious: No
  Sender: FDA-Public Use
  Company Number: US-BIOGENIDEC-2011BI033015

PATIENT
  Age: 41 Year
  Sex: Male

DRUGS (1)
  1. TYSABRI [Suspect]
     Indication: MULTIPLE SCLEROSIS
     Route: 042
     Dates: start: 20110822

REACTIONS (10)
  - TINNITUS [None]
  - ARTHRALGIA [None]
  - HYPERHIDROSIS [None]
  - BACK PAIN [None]
  - VISION BLURRED [None]
  - INCREASED APPETITE [None]
  - PAIN IN EXTREMITY [None]
  - MUSCULOSKELETAL PAIN [None]
  - WEIGHT INCREASED [None]
  - HERPES ZOSTER [None]
